FAERS Safety Report 24028318 (Version 1)
Quarter: 2024Q2

REPORT INFORMATION
  Report Type: Spontaneous
  Country: US (occurrence: US)
  Receive Date: 20240628
  Receipt Date: 20240628
  Transmission Date: 20240716
  Serious: Yes (Other)
  Sender: FDA-Public Use
  Company Number: US-MYLANLABS-2024M1058281

PATIENT
  Age: 63 Year
  Sex: Male

DRUGS (2)
  1. ATENOLOL [Interacting]
     Active Substance: ATENOLOL
     Indication: Acute myocardial infarction
     Dosage: UNK
     Route: 065
  2. CARVEDILOL [Interacting]
     Active Substance: CARVEDILOL
     Indication: Acute myocardial infarction
     Dosage: UNK
     Route: 065

REACTIONS (4)
  - Product prescribing error [Unknown]
  - Drug interaction [Unknown]
  - Bradycardia [Unknown]
  - Hypotension [Unknown]
